FAERS Safety Report 7926775-2 (Version None)
Quarter: 2011Q4

REPORT INFORMATION
  Report Type: 
  Country: None (occurrence: None)
  Receive Date: 20111118
  Receipt Date: 20111111
  Transmission Date: 20120403
  Serious: Yes (Other)
  Sender: FDA-Public Use
  Company Number: US-JNJFOC-20111105435

PATIENT
  Sex: Female
  Weight: 58.97 kg

DRUGS (8)
  1. OMEPRAZOLE [Concomitant]
     Indication: GASTROOESOPHAGEAL REFLUX DISEASE
     Route: 048
  2. SIMPONI [Suspect]
     Indication: RHEUMATOID ARTHRITIS
     Route: 058
     Dates: start: 20110201
  3. ZOFRAN [Concomitant]
     Indication: NAUSEA
  4. PREDNISONE TAB [Concomitant]
     Indication: RHEUMATOID ARTHRITIS
     Route: 048
     Dates: start: 19850101
  5. CALCIUM [Concomitant]
     Indication: OSTEOPOROSIS
     Route: 048
     Dates: start: 19960101
  6. VITAMIN D [Concomitant]
     Dosage: 50, 000 UNITS TWICE WEEKLY
     Route: 048
     Dates: start: 19850101
  7. FORTEO [Concomitant]
     Indication: OSTEOPOROSIS
     Route: 058
     Dates: start: 20110101
  8. ARAVA [Suspect]
     Indication: RHEUMATOID ARTHRITIS
     Route: 048
     Dates: start: 20110501

REACTIONS (5)
  - LIVER DISORDER [None]
  - ANAEMIA [None]
  - DRUG DOSE OMISSION [None]
  - THERAPEUTIC RESPONSE DECREASED [None]
  - DEVICE FAILURE [None]
